FAERS Safety Report 9366951 (Version 2)
Quarter: 2013Q3

REPORT INFORMATION
  Report Type: Spontaneous
  Country: BR (occurrence: BR)
  Receive Date: 20130625
  Receipt Date: 20130823
  Transmission Date: 20140515
  Serious: Yes (Other)
  Sender: FDA-Public Use
  Company Number: PHHY2013BR063215

PATIENT
  Age: 73 Year
  Sex: Female

DRUGS (6)
  1. GALVUS [Suspect]
     Indication: DIABETES MELLITUS
     Dosage: 50 MG, UNK
  2. APRESOLIN [Suspect]
     Indication: BLOOD PRESSURE
     Dosage: 2 DF (50 MG, 1 IN THE MORNING AND 1 IN THE NIGHT) A DAY
     Route: 048
  3. APRESOLIN [Suspect]
     Dosage: 1 DF, (50 MG, HALF IN THE MORNING AND HALF IN THE NIGHT) A DAY
     Route: 048
  4. DIOVAN [Suspect]
     Indication: BLOOD PRESSURE
     Dosage: 320 MG, UNK
  5. ACTOS [Suspect]
     Dosage: UNK UKN, UNK
  6. AMARYL [Suspect]
     Dosage: UNK UKN, UNK

REACTIONS (5)
  - Syncope [Recovered/Resolved]
  - Blood pressure inadequately controlled [Recovered/Resolved]
  - Vomiting [Recovered/Resolved]
  - Malaise [Recovered/Resolved]
  - Wrong technique in drug usage process [Unknown]
